FAERS Safety Report 10391076 (Version 4)
Quarter: 2014Q3

REPORT INFORMATION
  Report Type: Spontaneous
  Country: US (occurrence: US)
  Receive Date: 20140818
  Receipt Date: 20140905
  Transmission Date: 20150326
  Serious: Yes (Disabling)
  Sender: FDA-Public Use
  Company Number: US-VIIV HEALTHCARE LIMITED-A1084356A

PATIENT
  Age: 33 Year
  Sex: Male
  Weight: 86.8 kg

DRUGS (5)
  1. METHAMPHETAMINE [Suspect]
     Active Substance: METHAMPHETAMINE
     Indication: PRODUCT USED FOR UNKNOWN INDICATION
     Route: 065
  2. TIVICAY [Suspect]
     Active Substance: DOLUTEGRAVIR SODIUM
     Indication: HIV INFECTION
     Dosage: 50MG PER DAY
     Route: 048
     Dates: start: 201406, end: 20140730
  3. BACTRIM DS [Suspect]
     Active Substance: SULFAMETHOXAZOLE\TRIMETHOPRIM
     Indication: PRODUCT USED FOR UNKNOWN INDICATION
     Route: 065
     Dates: end: 20140730
  4. OXYCODONE [Concomitant]
     Active Substance: OXYCODONE
     Dosage: 5MG AS REQUIRED
     Route: 048
  5. TRUVADA [Suspect]
     Active Substance: EMTRICITABINE\TENOFOVIR DISOPROXIL FUMARATE
     Indication: HIV INFECTION
     Dosage: 1TAB PER DAY
     Route: 048
     Dates: end: 20140730

REACTIONS (24)
  - Jaundice [Recovered/Resolved]
  - Blood bilirubin increased [Recovering/Resolving]
  - Pruritus [Recovering/Resolving]
  - Hepatitis C [Unknown]
  - Nausea [Recovered/Resolved]
  - Liver function test abnormal [Recovering/Resolving]
  - Hepatomegaly [Unknown]
  - Transaminases increased [Recovering/Resolving]
  - Faeces pale [Recovering/Resolving]
  - Immune reconstitution inflammatory syndrome [Unknown]
  - Diarrhoea [Recovered/Resolved]
  - Vomiting [Recovered/Resolved]
  - Drug hypersensitivity [Unknown]
  - Hepatitis acute [Recovering/Resolving]
  - Chromaturia [Recovering/Resolving]
  - Splenomegaly [Unknown]
  - Abdominal pain upper [Unknown]
  - Ocular icterus [Unknown]
  - Liver injury [Unknown]
  - Pancreatitis [Unknown]
  - Pancreatic mass [Unknown]
  - Lymphoma [Unknown]
  - Rash [Recovered/Resolved]
  - Lymphadenopathy [Unknown]

NARRATIVE: CASE EVENT DATE: 201407
